FAERS Safety Report 22276501 (Version 2)
Quarter: 2023Q2

REPORT INFORMATION
  Report Type: Spontaneous
  Country: DE (occurrence: DE)
  Receive Date: 20230503
  Receipt Date: 20230609
  Transmission Date: 20230721
  Serious: Yes (Other)
  Sender: FDA-Public Use
  Company Number: DE-MENARINI-DE-MEN-087628

PATIENT
  Age: 70 Year
  Sex: Female

DRUGS (15)
  1. ARIPIPRAZOLE [Interacting]
     Active Substance: ARIPIPRAZOLE
     Indication: Product used for unknown indication
     Dosage: UNK
     Route: 065
  2. ASPIRIN [Interacting]
     Active Substance: ASPIRIN
     Indication: Product used for unknown indication
     Dosage: 100 MILLIGRAM
     Route: 065
  3. BISOPROLOL [Interacting]
     Active Substance: BISOPROLOL
     Indication: Product used for unknown indication
     Dosage: UNK
     Route: 065
  4. PANTOPRAZOLE [Interacting]
     Active Substance: PANTOPRAZOLE
     Indication: Product used for unknown indication
     Dosage: UNK
     Route: 065
  5. PRAMIPEXOLE [Interacting]
     Active Substance: PRAMIPEXOLE
     Indication: Product used for unknown indication
     Dosage: UNK
     Route: 065
  6. PREGABALIN [Interacting]
     Active Substance: PREGABALIN
     Indication: Product used for unknown indication
     Dosage: UNK
     Route: 065
  7. SIMVASTATIN [Suspect]
     Active Substance: SIMVASTATIN
     Indication: Product used for unknown indication
     Dosage: UNK
     Route: 065
  8. TOLTERODINE [Interacting]
     Active Substance: TOLTERODINE
     Indication: Product used for unknown indication
     Dosage: UNK
     Route: 065
  9. HERBALS [Interacting]
     Active Substance: HERBALS
     Indication: Product used for unknown indication
     Dosage: UNK
     Route: 065
  10. INSULIN NOS [Interacting]
     Active Substance: INSULIN NOS
     Indication: Product used for unknown indication
     Dosage: UNK (AS PER PLAN)
     Route: 065
  11. LORAZEPAM [Interacting]
     Active Substance: LORAZEPAM
     Indication: Product used for unknown indication
     Dosage: UNK
     Route: 065
  12. METAMIZOLE [Interacting]
     Active Substance: METAMIZOLE
     Indication: Product used for unknown indication
     Dosage: UNK UNK, AS NECESSARY
     Route: 065
  13. PROTHIPENDYL [Interacting]
     Active Substance: PROTHIPENDYL
     Indication: Product used for unknown indication
     Dosage: UNK
     Route: 065
  14. SIMVASTATIN [Interacting]
     Active Substance: SIMVASTATIN
     Indication: Product used for unknown indication
     Dosage: UNK
     Route: 065
  15. TORSEMIDE [Interacting]
     Active Substance: TORSEMIDE
     Indication: Product used for unknown indication
     Dosage: UNK
     Route: 065

REACTIONS (4)
  - Anxiety [Unknown]
  - Disorientation [Unknown]
  - Fall [Recovered/Resolved]
  - Drug interaction [Unknown]
